FAERS Safety Report 23098436 (Version 3)
Quarter: 2024Q1

REPORT INFORMATION
  Report Type: Spontaneous
  Country: US (occurrence: US)
  Receive Date: 20231023
  Receipt Date: 20240320
  Transmission Date: 20240409
  Serious: Yes (Hospitalization)
  Sender: FDA-Public Use
  Company Number: US-PFIZER INC-202300335424

PATIENT
  Age: 76 Year
  Sex: Female
  Weight: 71.21 kg

DRUGS (3)
  1. IBRANCE [Suspect]
     Active Substance: PALBOCICLIB
     Indication: Lung neoplasm malignant
     Dosage: 100 UNIT NOT REPORTED, 1X/DAY, THEN STAY OUT FOR SEVEN DAYS
     Dates: start: 2018
  2. IBRANCE [Suspect]
     Active Substance: PALBOCICLIB
     Dosage: 100 MG
  3. CHOLESTEROL [Concomitant]
     Active Substance: CHOLESTEROL
     Dosage: UNK

REACTIONS (7)
  - Feeling abnormal [Unknown]
  - Off label use [Unknown]
  - Dry skin [Not Recovered/Not Resolved]
  - Limb discomfort [Unknown]
  - Gait disturbance [Unknown]
  - Full blood count decreased [Unknown]
  - Lip discolouration [Unknown]

NARRATIVE: CASE EVENT DATE: 20180101
